FAERS Safety Report 20798843 (Version 1)
Quarter: 2022Q2

REPORT INFORMATION
  Report Type: Spontaneous
  Country: US (occurrence: US)
  Receive Date: 20220507
  Receipt Date: 20220507
  Transmission Date: 20220720
  Serious: No
  Sender: FDA-Public Use
  Company Number: US-BRISTOL-MYERS SQUIBB COMPANY-USA-20210506909

PATIENT
  Age: 32 Year
  Sex: Male

DRUGS (1)
  1. THALOMID [Suspect]
     Active Substance: THALIDOMIDE
     Indication: Type 2 lepra reaction
     Route: 048
     Dates: start: 201906

REACTIONS (2)
  - Treatment noncompliance [Unknown]
  - Product dose omission issue [Unknown]
